FAERS Safety Report 6618578-6 (Version None)
Quarter: 2010Q1

REPORT INFORMATION
  Report Type: 
  Country: None (occurrence: None)
  Receive Date: 20100308
  Receipt Date: 20100302
  Transmission Date: 20100710
  Serious: Yes (Death, Hospitalization)
  Sender: FDA-Public Use
  Company Number: ES-CELGENEUS-144-21880-09111362

PATIENT
  Age: 61 Year
  Sex: Male
  Weight: 65 kg

DRUGS (2)
  1. REVLIMID [Suspect]
     Indication: MULTIPLE MYELOMA
     Route: 048
     Dates: start: 20080725, end: 20090803
  2. FORTECORTIN [Concomitant]
     Indication: MULTIPLE MYELOMA
     Route: 030
     Dates: start: 20080725, end: 20090803

REACTIONS (1)
  - PLASMACYTOMA [None]
